FAERS Safety Report 4334891-X (Version None)
Quarter: 2004Q2

REPORT INFORMATION
  Report Type: 
  Country: None (occurrence: None)
  Receive Date: 20040405
  Receipt Date: 20040329
  Transmission Date: 20050107
  Serious: Yes (Life-Threatening)
  Sender: FDA-Public Use
  Company Number: 2004AC00052

PATIENT
  Age: 22 Year
  Sex: Female

DRUGS (2)
  1. BUPIVACAINE [Suspect]
     Indication: ANAESTHESIA
     Dosage: 2.5 MG
     Route: 024
  2. SUFENTANIL CITRATE [Suspect]
     Indication: ANAESTHESIA
     Dosage: 5 UG

REACTIONS (11)
  - APNOEA [None]
  - BLOOD PRESSURE SYSTOLIC DECREASED [None]
  - CARDIAC FAILURE ACUTE [None]
  - CARDIOGENIC SHOCK [None]
  - CIRCULATORY COLLAPSE [None]
  - COMA [None]
  - COMPLICATIONS OF MATERNAL EXPOSURE TO THERAPEUTIC DRUGS [None]
  - FORCEPS DELIVERY [None]
  - PERIPARTUM CARDIOMYOPATHY [None]
  - PULMONARY OEDEMA [None]
  - TACHYCARDIA [None]
